FAERS Safety Report 18762625 (Version 3)
Quarter: 2021Q2

REPORT INFORMATION
  Report Type: Spontaneous
  Country: US (occurrence: US)
  Receive Date: 20210120
  Receipt Date: 20210429
  Transmission Date: 20210717
  Serious: Yes (Hospitalization, Other)
  Sender: FDA-Public Use
  Company Number: US-CATALYST PHARMACEUTICALS, INC-2021CAT00014

PATIENT
  Age: 80 Year
  Sex: Male
  Weight: 68.03 kg

DRUGS (4)
  1. PYRIDOSTIGMINE BROMIDE. [Concomitant]
     Active Substance: PYRIDOSTIGMINE BROMIDE
     Dosage: 30 MG, 4X/DAY
     Route: 048
  2. MUCINEX [Concomitant]
     Active Substance: GUAIFENESIN
     Dosage: 600 MG, EVERY 12 HOURS
     Route: 048
  3. FIRDAPSE [Suspect]
     Active Substance: AMIFAMPRIDINE PHOSPHATE
     Indication: MYASTHENIC SYNDROME
     Dosage: 20 MG, 4X/DAY
     Route: 048
     Dates: start: 2009
  4. LOSARTAN. [Concomitant]
     Active Substance: LOSARTAN
     Dosage: 50 MG, 1X/DAY
     Route: 048

REACTIONS (15)
  - Benign prostatic hyperplasia [Not Recovered/Not Resolved]
  - Cholecystitis acute [Recovered/Resolved]
  - Pneumonia viral [Recovered/Resolved]
  - Decreased appetite [Recovering/Resolving]
  - Fall [Recovered/Resolved]
  - Respiratory failure [Recovered/Resolved]
  - Urinary retention [Recovering/Resolving]
  - Haematuria [Recovered/Resolved]
  - Hypophagia [Recovered/Resolved]
  - Lower urinary tract symptoms [Not Recovered/Not Resolved]
  - Haemorrhoidal haemorrhage [Unknown]
  - COVID-19 pneumonia [Recovered/Resolved]
  - Hyponatraemia [Recovering/Resolving]
  - Hypertension [Not Recovered/Not Resolved]
  - Depression [Unknown]

NARRATIVE: CASE EVENT DATE: 20190511
